FAERS Safety Report 4444994-7 (Version None)
Quarter: 2004Q3

REPORT INFORMATION
  Report Type: 
  Country: None (occurrence: None)
  Receive Date: 20040907
  Receipt Date: 20040825
  Transmission Date: 20050211
  Serious: Yes (Hospitalization)
  Sender: FDA-Public Use
  Company Number: 2004SE04828

PATIENT
  Age: 89 Year
  Sex: Male

DRUGS (16)
  1. ATENOLOL [Suspect]
     Indication: ANGINA PECTORIS
     Dosage: 100 MG DAILY PO
     Route: 048
     Dates: start: 19990101
  2. ATENOLOL [Suspect]
     Indication: HYPERTONIA
     Dosage: 100 MG DAILY PO
     Route: 048
     Dates: start: 19990101
  3. PLENDIL [Suspect]
     Indication: HYPERTONIA
     Dosage: 5 MG DAILY PO
     Route: 048
     Dates: start: 20040326, end: 20040413
  4. TRIATEC [Suspect]
     Indication: CARDIAC FAILURE
     Dosage: 1 DF DAILY PO
     Route: 048
     Dates: start: 20040402, end: 20040413
  5. LANSOPRAZOLE [Suspect]
     Indication: PROPHYLAXIS
     Dates: start: 20040402
  6. KLEXANE [Suspect]
     Indication: PROPHYLAXIS
     Dosage: 1 DF DAILY SQ
     Route: 058
     Dates: start: 20040326
  7. TROMBYL [Suspect]
     Indication: PROPHYLAXIS
     Dosage: 75 MG DAILY PO
     Route: 048
     Dates: start: 20040326, end: 20040413
  8. PLAVIX [Suspect]
     Indication: PROPHYLAXIS
     Dosage: 75 MG DAILY PO
     Route: 048
     Dates: start: 20040326, end: 20040413
  9. ALVEDON [Concomitant]
  10. SIMVASTATIN [Concomitant]
  11. WARAN [Concomitant]
  12. NITROMEX [Concomitant]
  13. SPIRONOLAKTON [Concomitant]
  14. DEXOFEN ^ASTRA^ [Concomitant]
  15. FUROSEMIDE ^MERCKLE^ [Concomitant]
  16. IMDUR [Concomitant]

REACTIONS (18)
  - ANOREXIA [None]
  - ASTHENIA [None]
  - BED REST [None]
  - BLOOD CREATINE INCREASED [None]
  - BLOOD CREATINE PHOSPHOKINASE INCREASED [None]
  - BLOOD PRESSURE DIASTOLIC DECREASED [None]
  - BODY TEMPERATURE INCREASED [None]
  - BRADYCARDIA [None]
  - CARDIAC FAILURE [None]
  - DEPRESSED LEVEL OF CONSCIOUSNESS [None]
  - EXANTHEM [None]
  - GENERAL PHYSICAL HEALTH DETERIORATION [None]
  - HAEMOGLOBIN DECREASED [None]
  - MYOCARDIAL INFARCTION [None]
  - NEUROLOGICAL SYMPTOM [None]
  - RASH [None]
  - SEBORRHOEIC DERMATITIS [None]
  - VENTRICULAR DYSFUNCTION [None]
